FAERS Safety Report 7701134-6 (Version None)
Quarter: 2011Q3

REPORT INFORMATION
  Report Type: 
  Country: None (occurrence: None)
  Receive Date: 20110817
  Receipt Date: 20110805
  Transmission Date: 20111222
  Serious: Yes (Other)
  Sender: FDA-Public Use
  Company Number: TPA2011A04707

PATIENT
  Age: 79 Year
  Sex: Female
  Weight: 73.0291 kg

DRUGS (4)
  1. JANUVIA [Concomitant]
  2. UNKNOWN HIGH BLOOD PRESSURE MEDICATION(ANTIHYPERTENSIVES) [Concomitant]
  3. AMARYL [Concomitant]
  4. ACTOS [Suspect]
     Indication: TYPE 2 DIABETES MELLITUS
     Dosage: 45 MG, 1 IN 1 D, PER ORAL
     Route: 048
     Dates: start: 19940101

REACTIONS (10)
  - ARTHRITIS [None]
  - DYSPEPSIA [None]
  - CATARACT [None]
  - LIGAMENT SPRAIN [None]
  - BRONCHITIS [None]
  - HAND FRACTURE [None]
  - FALL [None]
  - WEIGHT INCREASED [None]
  - LOWER LIMB FRACTURE [None]
  - GASTRITIS [None]
